FAERS Safety Report 15120833 (Version 1)
Quarter: 2018Q4

REPORT INFORMATION
  Report Type: Spontaneous
  Country: US (occurrence: US)
  Receive Date: 20180709
  Receipt Date: 20180709
  Transmission Date: 20190204
  Serious: No
  Sender: FDA-Public Use
  Company Number: US-AKRON, INC.-2051566

PATIENT
  Sex: Female

DRUGS (1)
  1. CLOBETASOL PROPIOANTE CREAM [Suspect]
     Active Substance: CLOBETASOL PROPIONATE
     Route: 061
     Dates: start: 20180215, end: 20180215

REACTIONS (3)
  - Skin burning sensation [Recovering/Resolving]
  - Swelling [Recovered/Resolved]
  - Erythema [Recovering/Resolving]

NARRATIVE: CASE EVENT DATE: 20180215
